FAERS Safety Report 4457154-0 (Version None)
Quarter: 2004Q3

REPORT INFORMATION
  Report Type: 
  Country: None (occurrence: None)
  Receive Date: 20040923
  Receipt Date: 20040907
  Transmission Date: 20050211
  Serious: Yes (Other)
  Sender: FDA-Public Use
  Company Number: PHBS2004JP11901

PATIENT
  Age: 27 Year
  Sex: Male

DRUGS (5)
  1. CARBAMAZEPINE [Suspect]
     Indication: EPILEPSY
     Route: 048
  2. PHENOBARBITAL TAB [Suspect]
     Indication: EPILEPSY
     Route: 048
  3. PHENYTOIN [Suspect]
     Indication: EPILEPSY
     Route: 048
  4. VALPROATE SODIUM [Suspect]
     Indication: EPILEPSY
     Route: 048
  5. CLONAZEPAM [Suspect]
     Indication: EPILEPSY
     Route: 048

REACTIONS (7)
  - ANAEMIA MEGALOBLASTIC [None]
  - BIOPSY BONE MARROW ABNORMAL [None]
  - FOLATE DEFICIENCY [None]
  - MEAN CELL VOLUME ABNORMAL [None]
  - RED BLOOD CELL COUNT DECREASED [None]
  - TRANSFERRIN DECREASED [None]
  - VITAMIN B12 DECREASED [None]
